FAERS Safety Report 8967231 (Version 1)
Quarter: 2012Q4

REPORT INFORMATION
  Report Type: 
  Country: US (occurrence: US)
  Receive Date: 20121214
  Receipt Date: 20121214
  Transmission Date: 20130627
  Serious: No
  Sender: FDA-Public Use
  Company Number: US-GLAXOSMITHKLINE-A0963133A

PATIENT
  Age: 2 Year
  Sex: Female

DRUGS (2)
  1. FLUTICASONE PROPIONATE [Suspect]
     Indication: PRODUCT USED FOR UNKNOWN INDICATION
     Dosage: 2SPR Per day
     Route: 045
     Dates: start: 20110718
  2. DIETARY SUPPLEMENT [Concomitant]

REACTIONS (2)
  - Psychomotor hyperactivity [Unknown]
  - Parosmia [Unknown]
